FAERS Safety Report 23041511 (Version 1)
Quarter: 2023Q4

REPORT INFORMATION
  Report Type: Spontaneous
  Country: US (occurrence: US)
  Receive Date: 20231007
  Receipt Date: 20231007
  Transmission Date: 20240109
  Serious: Yes (Hospitalization)
  Sender: FDA-Public Use
  Company Number: US-drreddys-LIT/USA/23/0178840

PATIENT
  Sex: Male

DRUGS (7)
  1. TACROLIMUS [Suspect]
     Active Substance: TACROLIMUS
     Indication: Prophylaxis against graft versus host disease
  2. DOXORUBICIN [Suspect]
     Active Substance: DOXORUBICIN
     Indication: Burkitt^s lymphoma
  3. IDARUBICIN [Suspect]
     Active Substance: IDARUBICIN
     Indication: Acute myeloid leukaemia
  4. CYTARABINE [Suspect]
     Active Substance: CYTARABINE
     Indication: Acute myeloid leukaemia
  5. FLUDARABINE [Suspect]
     Active Substance: FLUDARABINE PHOSPHATE
     Indication: Prophylaxis against graft versus host disease
  6. MYCOPHENOLATE MOFETIL [Suspect]
     Active Substance: MYCOPHENOLATE MOFETIL
     Indication: Prophylaxis against graft versus host disease
  7. CYCLOPHOSPHAMIDE [Suspect]
     Active Substance: CYCLOPHOSPHAMIDE
     Indication: Prophylaxis against graft versus host disease

REACTIONS (11)
  - Clostridium difficile colitis [Unknown]
  - Palmar-plantar erythrodysaesthesia syndrome [Unknown]
  - Cytomegalovirus infection reactivation [Unknown]
  - Disseminated varicella zoster virus infection [Unknown]
  - Cystitis haemorrhagic [Unknown]
  - Post transplant lymphoproliferative disorder [Unknown]
  - Post herpetic neuralgia [Unknown]
  - Deep vein thrombosis [Unknown]
  - Graft versus host disease in gastrointestinal tract [Unknown]
  - Drug ineffective [Unknown]
  - Product use in unapproved indication [Unknown]
